FAERS Safety Report 6448141-1 (Version None)
Quarter: 2009Q4

REPORT INFORMATION
  Report Type: 
  Country: None (occurrence: None)
  Receive Date: 20091120
  Receipt Date: 20091118
  Transmission Date: 20100525
  Serious: Yes (Other)
  Sender: FDA-Public Use
  Company Number: DE-SANOFI-AVENTIS-2009SA002657

PATIENT
  Age: 70 Year
  Sex: Male

DRUGS (1)
  1. LANTUS [Suspect]
     Route: 058
     Dates: start: 20090101

REACTIONS (1)
  - INTESTINAL POLYP [None]
